FAERS Safety Report 24159561 (Version 1)
Quarter: 2024Q3

REPORT INFORMATION
  Report Type: Spontaneous
  Country: US (occurrence: US)
  Receive Date: 20240731
  Receipt Date: 20240731
  Transmission Date: 20241017
  Serious: No
  Sender: AURINIA PHARMACEUTICALS
  Company Number: US-AURINIA PHARMACEUTICALS INC.-AUR-005272

PATIENT
  Sex: Female

DRUGS (2)
  1. LUPKYNIS [Suspect]
     Active Substance: VOCLOSPORIN
     Indication: Lupus nephritis
     Dosage: 23.7 MILLIGRAM, BID
     Route: 048
     Dates: start: 20240127
  2. BENLYSTA [Suspect]
     Active Substance: BELIMUMAB
     Indication: Product used for unknown indication
     Dosage: UNK

REACTIONS (11)
  - Heart rate increased [Unknown]
  - Dizziness [Recovered/Resolved]
  - Fluid retention [Unknown]
  - Blood cholesterol increased [Recovering/Resolving]
  - Malaise [Unknown]
  - Back pain [Recovering/Resolving]
  - Swelling [Unknown]
  - Amnesia [Unknown]
  - Fatigue [Unknown]
  - Headache [Recovered/Resolved]
  - Product dose omission issue [Unknown]
